FAERS Safety Report 5993181-X (Version None)
Quarter: 2008Q4

REPORT INFORMATION
  Report Type: 
  Country: None (occurrence: None)
  Receive Date: 20081212
  Receipt Date: 20081205
  Transmission Date: 20090506
  Serious: Yes (Other)
  Sender: FDA-Public Use
  Company Number: US-JNJFOC-20081202321

PATIENT
  Age: 43 Year
  Sex: Female
  Weight: 73.94 kg

DRUGS (8)
  1. EXTRA STRENGTH TYLENOL [Suspect]
     Route: 048
  2. EXTRA STRENGTH TYLENOL [Suspect]
     Indication: DYSMENORRHOEA
     Route: 048
  3. LITHIUM CARBONATE [Concomitant]
  4. LITHIUM CARBONATE [Concomitant]
     Indication: BIPOLAR DISORDER
  5. BUSPAR [Concomitant]
     Indication: ANXIETY
  6. SYNTHROID [Concomitant]
     Indication: HYPOTHYROIDISM
  7. XOPENEX [Concomitant]
     Indication: ASTHMA
  8. ATIVAN [Concomitant]
     Indication: ANXIETY

REACTIONS (2)
  - NAUSEA [None]
  - PRODUCT TAMPERING [None]
